FAERS Safety Report 11767775 (Version 1)
Quarter: 2015Q4

REPORT INFORMATION
  Report Type: Spontaneous
  Country: US (occurrence: None)
  Receive Date: 20151120
  Receipt Date: 20151120
  Transmission Date: 20160304
  Serious: Yes (Disabling)
  Sender: FDA-Public Use
  Company Number: None

PATIENT
  Age: 69 Year
  Sex: Female
  Weight: 118.84 kg

DRUGS (16)
  1. MSM [Concomitant]
     Active Substance: DIMETHYL SULFONE
  2. COLLOGEN [Concomitant]
  3. DETEMIR [Concomitant]
  4. VITAMIN D [Concomitant]
     Active Substance: CHOLECALCIFEROL
  5. LEVEMIR [Suspect]
     Active Substance: INSULIN DETEMIR
     Indication: DIABETES MELLITUS
     Dosage: 35 UNITS BEFORE SUPPER
     Route: 058
     Dates: start: 20151015, end: 20151119
  6. FISH OILS [Concomitant]
  7. NOVOLOG INSULIN [Concomitant]
  8. MAGNESIUM [Concomitant]
     Active Substance: MAGNESIUM
  9. BIOSIL [Concomitant]
  10. CPAP MACHINE [Concomitant]
  11. VITAMIN C [Concomitant]
     Active Substance: ASCORBIC ACID
  12. VITAMIN E [Concomitant]
     Active Substance: .ALPHA.-TOCOPHEROL
  13. TRAMADOL. [Concomitant]
     Active Substance: TRAMADOL
  14. CALCIUM LACTATE [Concomitant]
     Active Substance: CALCIUM LACTATE
  15. MULTI-VITAMIN [Concomitant]
     Active Substance: .ALPHA.-TOCOPHEROL ACETATE, DL-\ASCORBIC ACID\CYANOCOBALAMIN\FLUORIDE ION\FOLIC ACID\NIACIN\PYRIDOXINE\RIBOFLAVIN\THIAMINE\VITAMIN A\VITAMIN D
  16. POTASSIUM [Concomitant]
     Active Substance: POTASSIUM

REACTIONS (23)
  - Weight loss poor [None]
  - Vertigo [None]
  - Palpitations [None]
  - Insomnia [None]
  - Pruritus [None]
  - Spinal pain [None]
  - Peripheral swelling [None]
  - Fatigue [None]
  - Headache [None]
  - Feeling abnormal [None]
  - Pain in jaw [None]
  - Musculoskeletal chest pain [None]
  - Nasal congestion [None]
  - Rhinorrhoea [None]
  - Musculoskeletal stiffness [None]
  - Feeling cold [None]
  - Dysstasia [None]
  - Muscular weakness [None]
  - Activities of daily living impaired [None]
  - Bone pain [None]
  - Ear pain [None]
  - Abdominal pain [None]
  - Urinary retention [None]

NARRATIVE: CASE EVENT DATE: 20151119
